FAERS Safety Report 8542748-3 (Version None)
Quarter: 2012Q3

REPORT INFORMATION
  Report Type: 
  Country: None (occurrence: None)
  Receive Date: 20120727
  Receipt Date: 20120104
  Transmission Date: 20120928
  Serious: Yes (Hospitalization)
  Sender: FDA-Public Use
  Company Number: US-BIOGENIDEC-2011BI048008

PATIENT
  Age: 56 Year
  Sex: Female

DRUGS (13)
  1. TYSABRI [Suspect]
     Indication: MULTIPLE SCLEROSIS
     Route: 042
     Dates: start: 20070627, end: 20111117
  2. RED RICE YEAST [Concomitant]
  3. IBUPROFEN [Concomitant]
  4. HYDROCHLOROTHIAZIDE [Concomitant]
  5. FLONASE [Concomitant]
  6. NIFEDIAC [Concomitant]
  7. LACTOBACILLUS [Concomitant]
  8. NIACIN [Concomitant]
  9. ALPHA LIPOIC ACID [Concomitant]
  10. NEURONTIN [Concomitant]
  11. NORTRIPTYLINE HCL [Concomitant]
  12. VITAMIN D [Concomitant]
  13. MAGNESIUM SULFATE [Concomitant]

REACTIONS (2)
  - PROGRESSIVE MULTIFOCAL LEUKOENCEPHALOPATHY [None]
  - FUNGAL INFECTION [None]
